FAERS Safety Report 10205434 (Version 1)
Quarter: 2014Q2

REPORT INFORMATION
  Report Type: Report from Study
  Country: GB (occurrence: GB)
  Receive Date: 20140529
  Receipt Date: 20140529
  Transmission Date: 20141212
  Serious: Yes (Hospitalization)
  Sender: FDA-Public Use
  Company Number: GB-009507513-1405GBR014340

PATIENT
  Age: 44 Year
  Sex: Male

DRUGS (8)
  1. BOCEPREVIR [Suspect]
     Indication: HEPATITIS C
     Dosage: 800 MG, Q8H
     Route: 048
     Dates: start: 20130124, end: 20130512
  2. PEGINTERFERON ALFA-2B [Suspect]
     Indication: HEPATITIS C
     Dosage: DAILY DOSE: 180 MICROGRAM
     Dates: start: 20121219
  3. RIBAVIRIN [Suspect]
     Indication: HEPATITIS C
     Dosage: TOTAL DAILY DOSE: 1000 MG
     Dates: start: 20121219
  4. IBUPROFEN [Concomitant]
     Indication: PAIN
     Dosage: 400 MG, PRN
  5. METHADONE HYDROCHLORIDE [Concomitant]
     Indication: DRUG DEPENDENCE
     Dosage: DAILY DOSE: 60 MG
     Dates: start: 20120926
  6. OMEPRAZOLE [Concomitant]
     Indication: GASTRITIS
     Dosage: DAILY DOSE: 40 MG
  7. SIMPLE LINCTUS (CITRIC ACID) [Concomitant]
     Indication: COUGH
     Dosage: 10 ML, PRN
  8. ZOPICLONE [Concomitant]
     Indication: SLEEP DISORDER
     Dosage: DOSE: 7.5 MG
     Dates: start: 20121219

REACTIONS (1)
  - Pneumonia [Recovered/Resolved]
